FAERS Safety Report 10508572 (Version 2)
Quarter: 2014Q4

REPORT INFORMATION
  Report Type: Spontaneous
  Country: US (occurrence: US)
  Receive Date: 20141009
  Receipt Date: 20141014
  Transmission Date: 20150528
  Serious: No
  Sender: FDA-Public Use
  Company Number: US-GILEAD-2014-0117558

PATIENT
  Age: 73 Year
  Sex: Female

DRUGS (3)
  1. LETAIRIS [Suspect]
     Active Substance: AMBRISENTAN
     Indication: PRODUCT USED FOR UNKNOWN INDICATION
     Dosage: 10 MG, QD
     Route: 065
     Dates: start: 20120820
  2. ORENITRAM [Concomitant]
     Active Substance: TREPROSTINIL
  3. ADCIRCA [Concomitant]
     Active Substance: TADALAFIL

REACTIONS (12)
  - Feeling abnormal [Unknown]
  - Asthenia [Unknown]
  - Unevaluable event [Unknown]
  - Fatigue [Unknown]
  - Pain in extremity [Unknown]
  - Insomnia [Unknown]
  - Exercise lack of [Unknown]
  - Nausea [Unknown]
  - Diarrhoea [Unknown]
  - Pain [Unknown]
  - Headache [Unknown]
  - Vomiting [Unknown]
